FAERS Safety Report 4517575-4 (Version None)
Quarter: 2004Q4

REPORT INFORMATION
  Report Type: 
  Country: None (occurrence: None)
  Receive Date: 20041203
  Receipt Date: 20041119
  Transmission Date: 20050328
  Serious: Yes (Death, Hospitalization)
  Sender: FDA-Public Use
  Company Number: PHBS2004IT15653

PATIENT
  Age: 52 Year
  Sex: Female

DRUGS (4)
  1. ZOLEDRONIC ACID [Suspect]
     Indication: BREAST CANCER
     Route: 042
  2. LETROZOLE [Concomitant]
     Route: 065
  3. FENTANYL [Concomitant]
     Indication: PAIN
     Route: 062
  4. PACLITAXEL [Concomitant]
     Dosage: 175 MG/M2
     Route: 065

REACTIONS (13)
  - ANAEMIA [None]
  - BLOOD BILIRUBIN INCREASED [None]
  - BLOOD LACTATE DEHYDROGENASE INCREASED [None]
  - CONFUSIONAL STATE [None]
  - CREATININE RENAL CLEARANCE DECREASED [None]
  - HYPERCALCAEMIA [None]
  - IMMUNE SYSTEM DISORDER [None]
  - NERVE STIMULATION TEST ABNORMAL [None]
  - RENAL IMPAIRMENT [None]
  - RETICULOCYTE COUNT INCREASED [None]
  - SOMNOLENCE [None]
  - THROMBOCYTOPENIA [None]
  - THROMBOTIC THROMBOCYTOPENIC PURPURA [None]
